FAERS Safety Report 9444795 (Version 2)
Quarter: 2014Q1

REPORT INFORMATION
  Report Type: Spontaneous
  Country: US (occurrence: US)
  Receive Date: 20130807
  Receipt Date: 20140109
  Transmission Date: 20141002
  Serious: Yes (Other)
  Sender: FDA-Public Use
  Company Number: US-AMGEN-USASP2013048358

PATIENT
  Age: 35 Year
  Sex: Female

DRUGS (8)
  1. ENBREL [Suspect]
     Indication: RHEUMATOID ARTHRITIS
     Dosage: 50 MG, QWK
     Route: 065
     Dates: start: 201004
  2. PLAQUENIL                          /00072602/ [Concomitant]
     Dosage: 200 MG, BID
     Route: 048
     Dates: start: 20070820
  3. FOLIC ACID [Concomitant]
     Dosage: 10 MG, QD
     Route: 048
     Dates: start: 20070820
  4. PREDNISONE [Concomitant]
     Indication: ARTHRALGIA
     Dosage: 2 MG, QD
     Route: 048
     Dates: start: 201202, end: 20131111
  5. EXPECTA LIPIL [Concomitant]
     Dosage: UNK UNK, QD
     Route: 048
     Dates: start: 20120903
  6. PRENATAL VITAMINS                  /07426201/ [Concomitant]
     Dosage: UNK UNK, QD
     Route: 048
     Dates: start: 20120903
  7. CALCIUM [Concomitant]
     Dosage: 600 MG, TID
     Route: 048
     Dates: start: 201002
  8. HYDROXYCHLOROQUINE [Concomitant]
     Dosage: 200 MG, BID
     Route: 048
     Dates: start: 200708

REACTIONS (4)
  - Haemorrhage [Unknown]
  - Rheumatoid arthritis [Unknown]
  - False labour [Unknown]
  - Exostosis [Unknown]
